FAERS Safety Report 9423172 (Version 2)
Quarter: 2013Q3

REPORT INFORMATION
  Report Type: Spontaneous
  Country: US (occurrence: US)
  Receive Date: 20130726
  Receipt Date: 20130815
  Transmission Date: 20140515
  Serious: Yes (Death, Other)
  Sender: FDA-Public Use
  Company Number: PHEH2013US015832

PATIENT
  Age: 90 Year
  Sex: Male

DRUGS (21)
  1. GLEEVEC [Suspect]
     Indication: LEUKAEMIA
     Dosage: 400 MG, QD
     Route: 048
     Dates: start: 2000
  2. NITROSTAT [Concomitant]
     Dosage: 0.4 UKN, IF NEEDED
  3. PROTONIX [Concomitant]
     Dosage: 40 MG, QD
  4. THERAGRAN [Concomitant]
     Dosage: 1 DF, DAILY
  5. I-VITE [Concomitant]
     Dosage: UNK UKN, BID
  6. PLAVIX [Concomitant]
     Dosage: 75 MG, QD
  7. DIGOXIN [Concomitant]
     Dosage: 0.125 MG, QD
  8. ASPIRIN [Concomitant]
     Dosage: 81 MG, QD
  9. LASIX [Concomitant]
     Dosage: 10 MG, EVERY THIRD DAY
  10. POTASSIUM CHLORIDE [Concomitant]
     Dosage: 10 MEQ, QD
  11. LOPRESSOR [Concomitant]
     Dosage: 12.5 MG, QD
  12. ISOSORBIDE MN [Concomitant]
     Dosage: 30 MG, QD
  13. ZOCOR [Concomitant]
     Dosage: 5 MG, QD
  14. BENICAR [Concomitant]
     Dosage: 5 MG, QD
     Dates: end: 20130412
  15. COMBIGAN [Concomitant]
     Dosage: UNK UKN, BID
  16. AZOPT [Concomitant]
     Dosage: UNK UKN, TID
  17. TRAVATAN [Concomitant]
     Dosage: UNK UKN, QD
  18. POLYETHYLENE GLYCOL [Concomitant]
     Dosage: 1 DF, DAILY
  19. IRON [Concomitant]
     Dosage: UNK UKN, UNK
  20. SYSTANE BALANCE [Concomitant]
     Dosage: UNK UKN, UPTO 5 TIMES DAILY
  21. WELCHOL [Concomitant]
     Dosage: 1 DF, BID

REACTIONS (4)
  - Cerebral haemorrhage [Fatal]
  - Pneumonia [Unknown]
  - Myocardial infarction [Unknown]
  - Ulcer [Unknown]
